FAERS Safety Report 4355377-2 (Version None)
Quarter: 2004Q2

REPORT INFORMATION
  Report Type: 
  Country: None (occurrence: None)
  Receive Date: 20040504
  Receipt Date: 20040423
  Transmission Date: 20050107
  Serious: Yes (Other)
  Sender: FDA-Public Use
  Company Number: US-JNJFOC-20040405197

PATIENT

DRUGS (1)
  1. REOPRO [Suspect]
     Dosage: INTRAVENOUS
     Route: 042
     Dates: start: 20040422, end: 20040423

REACTIONS (2)
  - CORONARY ARTERY REOCCLUSION [None]
  - SURGICAL PROCEDURE REPEATED [None]
